FAERS Safety Report 12281482 (Version 1)
Quarter: 2016Q2

REPORT INFORMATION
  Report Type: Spontaneous
  Country: US (occurrence: None)
  Receive Date: 20160418
  Receipt Date: 20160418
  Transmission Date: 20160815
  Serious: Yes (Hospitalization)
  Sender: FDA-Public Use
  Company Number: None

PATIENT
  Age: 91 Year
  Sex: Male
  Weight: 82.7 kg

DRUGS (1)
  1. HEPARIN [Suspect]
     Active Substance: HEPARIN SODIUM
     Indication: THROMBOSIS PROPHYLAXIS
     Route: 058
     Dates: start: 20160305, end: 20160308

REACTIONS (4)
  - Gastric varices [None]
  - Varices oesophageal [None]
  - Gastrointestinal haemorrhage [None]
  - Portal hypertensive gastropathy [None]

NARRATIVE: CASE EVENT DATE: 20160309
